FAERS Safety Report 7737797-9 (Version None)
Quarter: 2011Q3

REPORT INFORMATION
  Report Type: 
  Country: None (occurrence: None)
  Receive Date: 20110908
  Receipt Date: 20110902
  Transmission Date: 20111222
  Serious: Yes (Other)
  Sender: FDA-Public Use
  Company Number: PHHY2011DE71860

PATIENT
  Sex: Female
  Weight: 73 kg

DRUGS (2)
  1. ZOMETA [Suspect]
     Indication: PROPHYLAXIS
     Dosage: 4 MG/5ML
     Route: 042
     Dates: start: 20110726
  2. TAMOXIFEN CITRATE [Concomitant]
     Indication: BREAST CANCER
     Dosage: 20 MG, DAILY
     Route: 048
     Dates: start: 20100701

REACTIONS (5)
  - BLOOD PRESSURE DECREASED [None]
  - INFECTION [None]
  - PYREXIA [None]
  - LOSS OF CONSCIOUSNESS [None]
  - DIARRHOEA [None]
